FAERS Safety Report 16348450 (Version 2)
Quarter: 2019Q2

REPORT INFORMATION
  Report Type: Spontaneous
  Country: DE (occurrence: DE)
  Receive Date: 20190523
  Receipt Date: 20190611
  Transmission Date: 20190711
  Serious: Yes (Hospitalization, Other)
  Sender: FDA-Public Use
  Company Number: PHHY2019DE117016

PATIENT
  Age: 63 Year
  Sex: Male

DRUGS (1)
  1. ACETYLSALICYLIC ACID [Suspect]
     Active Substance: ASPIRIN
     Indication: PRODUCT USED FOR UNKNOWN INDICATION
     Dosage: UNK
     Route: 065

REACTIONS (11)
  - Haematoma [Recovered/Resolved]
  - Platelet function test abnormal [Recovered/Resolved]
  - Subdural haematoma [Recovered/Resolved]
  - Pneumonia [Unknown]
  - Sensory loss [Unknown]
  - Coagulopathy [Unknown]
  - Subarachnoid haemorrhage [Unknown]
  - Defaecation disorder [Unknown]
  - Paraplegia [Recovering/Resolving]
  - Muscular weakness [Unknown]
  - Spinal subarachnoid haemorrhage [Recovered/Resolved]
